FAERS Safety Report 14304633 (Version 1)
Quarter: 2017Q4

REPORT INFORMATION
  Report Type: Spontaneous
  Country: JP (occurrence: JP)
  Receive Date: 20171219
  Receipt Date: 20171219
  Transmission Date: 20180321
  Serious: Yes (Death, Other)
  Sender: FDA-Public Use
  Company Number: JP-OTSUKA-BJ20071367

PATIENT
  Age: 50 Year
  Sex: Male
  Weight: 58 kg

DRUGS (12)
  1. DETRUSITOL [Concomitant]
     Active Substance: TOLTERODINE TARTRATE
     Indication: HYPERTONIC BLADDER
     Dosage: 4 MG, QD
     Route: 048
     Dates: start: 20070622, end: 20070629
  2. GISTELINK [Concomitant]
     Dosage: 200 MG, QD
     Route: 048
     Dates: start: 20070620, end: 20070626
  3. GISTELINK [Concomitant]
     Indication: HYPERTONIC BLADDER
     Dosage: 200 MG, BID
     Route: 048
     Dates: end: 20070619
  4. ABILIFY [Suspect]
     Active Substance: ARIPIPRAZOLE
     Dosage: 12 MG, QD
     Route: 048
     Dates: start: 20070627, end: 20070630
  5. LODOPIN [Suspect]
     Active Substance: ZOTEPINE
     Indication: SCHIZOPHRENIA
     Dosage: 25 MG, QID
     Route: 048
     Dates: start: 20070608, end: 20070630
  6. ALLEGRA [Concomitant]
     Active Substance: FEXOFENADINE HYDROCHLORIDE
     Indication: RHINITIS ALLERGIC
     Dosage: 60 MG, BID
     Route: 048
     Dates: end: 20070630
  7. CRAVIT [Concomitant]
     Active Substance: LEVOFLOXACIN
     Indication: URINARY TRACT INFECTION
     Dosage: 100 MG, QID
     Route: 048
     Dates: start: 20070620, end: 20070625
  8. BLADDERON [Concomitant]
     Active Substance: FLAVOXATE
     Indication: HYPERTONIC BLADDER
     Dosage: 200 MG, QD
     Route: 048
     Dates: start: 20070627, end: 20070630
  9. CERCINE [Concomitant]
     Active Substance: DIAZEPAM
     Indication: ANXIETY
     Dosage: 5 MG, TID
     Route: 048
     Dates: end: 20070630
  10. ROHYPNOL [Concomitant]
     Active Substance: FLUNITRAZEPAM
     Indication: INSOMNIA
     Dosage: 2 MG, QD
     Route: 048
     Dates: end: 20070629
  11. VESICARE [Concomitant]
     Active Substance: SOLIFENACIN SUCCINATE
     Indication: HYPERTONIC BLADDER
     Dosage: 5 MG, QD
     Route: 048
     Dates: end: 20070621
  12. ABILIFY [Suspect]
     Active Substance: ARIPIPRAZOLE
     Indication: SCHIZOPHRENIA
     Dosage: 15 MG, QD
     Route: 048
     Dates: end: 20070626

REACTIONS (1)
  - Sudden death [Fatal]

NARRATIVE: CASE EVENT DATE: 20070630
